FAERS Safety Report 5374722-2 (Version None)
Quarter: 2007Q2

REPORT INFORMATION
  Report Type: 
  Country: None (occurrence: None)
  Receive Date: 20070629
  Receipt Date: 20070628
  Transmission Date: 20071010
  Serious: Yes (Hospitalization, Disabling, Other)
  Sender: FDA-Public Use
  Company Number: FR-BRISTOL-MYERS SQUIBB COMPANY-13755467

PATIENT
  Age: 65 Year
  Sex: Female

DRUGS (3)
  1. ABILIFY [Suspect]
     Indication: PSYCHOTIC DISORDER
     Dosage: INITIAL DOSAGE 10MG TAKEN 21-DEC-2006 TO 30-JAN-2007; INCR TO 15MG DAY 30JAN07 TO 10MAR07
     Route: 048
     Dates: start: 20061221, end: 20070310
  2. LEXOMIL [Concomitant]
     Route: 048
  3. ARTANE [Concomitant]
     Indication: TREMOR
     Route: 048

REACTIONS (1)
  - METABOLIC ENCEPHALOPATHY [None]
